FAERS Safety Report 9321062 (Version 1)
Quarter: 2013Q2

REPORT INFORMATION
  Report Type: Spontaneous
  Country: IT (occurrence: None)
  Receive Date: 20130528
  Receipt Date: 20130528
  Transmission Date: 20140414
  Serious: Yes (Hospitalization)
  Sender: FDA-Public Use
  Company Number: 2011AP003191

PATIENT
  Age: 40 Year
  Sex: Female

DRUGS (4)
  1. FERRIPROX [Suspect]
     Indication: IRON OVERLOAD
     Route: 048
     Dates: start: 20110430, end: 20111005
  2. DESFERAL [Concomitant]
  3. CORDARONE [Concomitant]
  4. WARFARIN [Concomitant]

REACTIONS (2)
  - Agranulocytosis [None]
  - Neutropenia [None]
